FAERS Safety Report 4645437-0 (Version None)
Quarter: 2005Q2

REPORT INFORMATION
  Report Type: 
  Country: None (occurrence: None)
  Receive Date: 20050425
  Receipt Date: 20050415
  Transmission Date: 20051028
  Serious: Yes (Death, Disabling, Other)
  Sender: FDA-Public Use
  Company Number: 2005-04-0853

PATIENT
  Age: 47 Year
  Sex: Male

DRUGS (2)
  1. INTRON A [Suspect]
     Indication: MALIGNANT MELANOMA
     Dates: start: 19990501, end: 19991001
  2. RADIATION THERAPY NO DOSE FORM [Suspect]
     Indication: MALIGNANT MELANOMA
     Dosage: 36 GY X-RAY THERAPY
     Dates: start: 19990601

REACTIONS (7)
  - BRACHIAL PLEXUS LESION [None]
  - CERVICAL MYELOPATHY [None]
  - DISEASE PROGRESSION [None]
  - METASTATIC MALIGNANT MELANOMA [None]
  - MYELITIS [None]
  - PAIN IN EXTREMITY [None]
  - QUADRIPARESIS [None]
